FAERS Safety Report 21553796 (Version 1)
Quarter: 2022Q4

REPORT INFORMATION
  Report Type: Spontaneous
  Country: CN (occurrence: CN)
  Receive Date: 20221104
  Receipt Date: 20221104
  Transmission Date: 20230113
  Serious: Yes (Other)
  Sender: FDA-Public Use
  Company Number: CN-002147023-NVSC2022CN246521

PATIENT
  Sex: Male
  Weight: 2.4 kg

DRUGS (8)
  1. CYCLOSPORINE [Suspect]
     Active Substance: CYCLOSPORINE
     Indication: Foetal exposure during pregnancy
     Dosage: MATERNAL DOSE; 1 MG/KG, BID (75 MG IN TOTAL)
     Route: 064
  2. CYCLOSPORINE [Suspect]
     Active Substance: CYCLOSPORINE
     Dosage: MATERNAL DOSE; 125 MG IN MORNING, 100 MG AT NIGHT
     Route: 064
  3. CYCLOSPORINE [Suspect]
     Active Substance: CYCLOSPORINE
     Dosage: MATERNAL DOSE; 3 MG/KG OR 225 MG PER DAY IN TWO DOSES, 125 MG  IN THE MORNING AND 100 MG AT NIGHT)
     Route: 063
  4. PREDNISONE [Suspect]
     Active Substance: PREDNISONE
     Indication: Foetal exposure during pregnancy
     Dosage: MATERNAL DOSE: 10 MG QD
     Route: 064
  5. PREDNISONE [Suspect]
     Active Substance: PREDNISONE
     Dosage: MATERNAL DOSE: 30 MG QD
     Route: 064
  6. PREDNISONE [Suspect]
     Active Substance: PREDNISONE
     Dosage: MATERNAL DOSE: UNKNOWN
     Route: 063
  7. HYDROXYCHLOROQUINE SULFATE [Suspect]
     Active Substance: HYDROXYCHLOROQUINE SULFATE
     Indication: Foetal exposure during pregnancy
     Dosage: MATERNAL DOSE: 200 MG, QD
     Route: 064
  8. HYDROXYCHLOROQUINE SULFATE [Suspect]
     Active Substance: HYDROXYCHLOROQUINE SULFATE
     Dosage: MATERNAL DOSE: UNKNOWN
     Route: 063

REACTIONS (4)
  - Premature baby [Unknown]
  - Low birth weight baby [Unknown]
  - Exposure via breast milk [Unknown]
  - Foetal exposure during pregnancy [Unknown]
